FAERS Safety Report 16191198 (Version 1)
Quarter: 2019Q2

REPORT INFORMATION
  Report Type: Spontaneous
  Country: US (occurrence: US)
  Receive Date: 20190412
  Receipt Date: 20190412
  Transmission Date: 20190711
  Serious: No
  Sender: FDA-Public Use
  Company Number: US-GLAXOSMITHKLINE-US2019061912

PATIENT
  Age: 58 Year
  Sex: Female

DRUGS (1)
  1. BENLYSTA [Suspect]
     Active Substance: BELIMUMAB
     Indication: PRODUCT USED FOR UNKNOWN INDICATION
     Dosage: UNK
     Route: 058
     Dates: start: 201902

REACTIONS (8)
  - Chills [Unknown]
  - Dysphonia [Unknown]
  - Feeling abnormal [Unknown]
  - Nasopharyngitis [Unknown]
  - Vomiting [Unknown]
  - Cough [Unknown]
  - Epistaxis [Unknown]
  - Chest discomfort [Unknown]

NARRATIVE: CASE EVENT DATE: 20190329
